FAERS Safety Report 14507018 (Version 1)
Quarter: 2018Q1

REPORT INFORMATION
  Report Type: Spontaneous
  Country: BR (occurrence: BR)
  Receive Date: 20180208
  Receipt Date: 20180208
  Transmission Date: 20180509
  Serious: Yes (Hospitalization, Other)
  Sender: FDA-Public Use
  Company Number: BR-TERSERA THERAPEUTICS, LLC-2041664

PATIENT
  Age: 40 Year
  Sex: Female
  Weight: 83 kg

DRUGS (2)
  1. ZOLADEX [Suspect]
     Active Substance: GOSERELIN ACETATE
     Indication: LEIOMYOMA
     Route: 058
     Dates: start: 2011, end: 20171020
  2. TRANEXAMIC ACID. [Concomitant]
     Active Substance: TRANEXAMIC ACID
     Route: 048
     Dates: start: 20171026

REACTIONS (6)
  - Diarrhoea [Recovered/Resolved]
  - Suture rupture [Recovered/Resolved]
  - Heat stroke [Not Recovered/Not Resolved]
  - Vaginal haemorrhage [Recovered/Resolved]
  - Headache [Recovered/Resolved]
  - Abdominal pain [Recovered/Resolved]

NARRATIVE: CASE EVENT DATE: 20171022
